FAERS Safety Report 15110601 (Version 3)
Quarter: 2018Q3

REPORT INFORMATION
  Report Type: Spontaneous
  Country: US (occurrence: US)
  Receive Date: 20180705
  Receipt Date: 20180807
  Transmission Date: 20181010
  Serious: Yes (Death)
  Sender: FDA-Public Use
  Company Number: PHEH2018US027421

PATIENT
  Age: 47 Year
  Sex: Female

DRUGS (1)
  1. TYKERB [Suspect]
     Active Substance: LAPATINIB DITOSYLATE
     Indication: BREAST CANCER FEMALE
     Dosage: 250 MG, QD (DAILY FOR 21 DAYS)
     Route: 065
     Dates: start: 20180104

REACTIONS (3)
  - Breast cancer female [Fatal]
  - Malignant neoplasm progression [Fatal]
  - Metastases to meninges [Fatal]

NARRATIVE: CASE EVENT DATE: 20180603
